FAERS Safety Report 15061331 (Version 1)
Quarter: 2018Q2

REPORT INFORMATION
  Report Type: Spontaneous
  Country: US (occurrence: US)
  Receive Date: 20180625
  Receipt Date: 20180625
  Transmission Date: 20180711
  Serious: No
  Sender: FDA-Public Use
  Company Number: US-ROCHE-1946010

PATIENT
  Sex: Female

DRUGS (1)
  1. XELODA [Suspect]
     Active Substance: CAPECITABINE
     Indication: PRODUCT USED FOR UNKNOWN INDICATION
     Dosage: ONCOLOGY INDICATION?TAKE 3-500 MG AND 2-150 MG TABS FOR 14 DAYS ON 7 OFF
     Route: 048

REACTIONS (5)
  - Fatigue [Unknown]
  - Stomatitis [Recovering/Resolving]
  - Abdominal discomfort [Recovering/Resolving]
  - Anorectal disorder [Recovering/Resolving]
  - Neuropathy peripheral [Recovering/Resolving]
